FAERS Safety Report 4874754-4 (Version None)
Quarter: 2006Q1

REPORT INFORMATION
  Report Type: 
  Country: None (occurrence: None)
  Receive Date: 20060105
  Receipt Date: 20060105
  Transmission Date: 20060701
  Serious: Yes (Hospitalization)
  Sender: FDA-Public Use
  Company Number: None

PATIENT
  Sex: Female
  Weight: 81.3 kg

DRUGS (2)
  1. PHENTERMINE [Suspect]
     Indication: WEIGHT DECREASED
     Dosage: 30 MG DAILY PO
     Route: 048
  2. LEVOFLOXACIN [Suspect]
     Indication: URINARY TRACT INFECTION
     Dosage: 250 MG DAILY PO
     Route: 048

REACTIONS (4)
  - BACK PAIN [None]
  - HEADACHE [None]
  - MOVEMENT DISORDER [None]
  - MUSCLE SPASMS [None]
